FAERS Safety Report 4476715-6 (Version None)
Quarter: 2004Q4

REPORT INFORMATION
  Report Type: 
  Country: None (occurrence: None)
  Receive Date: 20041015
  Receipt Date: 20041015
  Transmission Date: 20050328
  Serious: Yes (Life-Threatening)
  Sender: FDA-Public Use
  Company Number: None

PATIENT
  Age: 27 Year
  Sex: Female
  Weight: 56 kg

DRUGS (4)
  1. BEVACIXAMAB [Suspect]
     Indication: COLON CANCER
     Dosage: 5MG/KG   ONCE   INTRAVENOU
     Route: 042
  2. OXALIPLATIN [Concomitant]
  3. LEUCOVORIN [Concomitant]
  4. FLUOROURACIL [Concomitant]

REACTIONS (1)
  - INTESTINAL PERFORATION [None]
